FAERS Safety Report 9527278 (Version 3)
Quarter: 2014Q3

REPORT INFORMATION
  Report Type: Report from Study
  Country: US (occurrence: US)
  Receive Date: 20130917
  Receipt Date: 20140901
  Transmission Date: 20150326
  Serious: Yes (Hospitalization)
  Sender: FDA-Public Use
  Company Number: US-BIOGENIDEC-2013BI086360

PATIENT
  Age: 23 Year
  Sex: Female

DRUGS (6)
  1. TYSABRI [Suspect]
     Active Substance: NATALIZUMAB
     Indication: MULTIPLE SCLEROSIS
     Route: 042
     Dates: start: 20100323, end: 20120307
  2. TECFIDERA [Concomitant]
     Active Substance: DIMETHYL FUMARATE
     Indication: MULTIPLE SCLEROSIS
     Route: 048
     Dates: start: 2014
  3. TECFIDERA [Concomitant]
     Active Substance: DIMETHYL FUMARATE
     Indication: MULTIPLE SCLEROSIS
     Route: 048
     Dates: start: 2014, end: 2014
  4. TYSABRI [Suspect]
     Active Substance: NATALIZUMAB
     Indication: MULTIPLE SCLEROSIS
     Route: 042
     Dates: start: 20120423, end: 20120927
  5. TYSABRI [Suspect]
     Active Substance: NATALIZUMAB
     Indication: MULTIPLE SCLEROSIS
     Route: 042
     Dates: start: 20130219, end: 20131011
  6. VALIUM [Concomitant]
     Active Substance: DIAZEPAM
     Indication: MUSCLE SPASMS

REACTIONS (4)
  - General symptom [Recovered/Resolved with Sequelae]
  - Hysterectomy [Recovered/Resolved]
  - Gingival operation [Recovered/Resolved with Sequelae]
  - Toothache [Not Recovered/Not Resolved]

NARRATIVE: CASE EVENT DATE: 20130605
